FAERS Safety Report 16642888 (Version 4)
Quarter: 2019Q4

REPORT INFORMATION
  Report Type: Spontaneous
  Country: JP (occurrence: JP)
  Receive Date: 20190729
  Receipt Date: 20191219
  Transmission Date: 20200122
  Serious: Yes (Other)
  Sender: FDA-Public Use
  Company Number: JP-JNJFOC-20180900723

PATIENT
  Age: 58 Year
  Sex: Female
  Weight: 60 kg

DRUGS (3)
  1. TREMFYA [Suspect]
     Active Substance: GUSELKUMAB
     Indication: PSORIASIS
     Route: 058
     Dates: start: 20180604, end: 20180604
  2. TREMFYA [Suspect]
     Active Substance: GUSELKUMAB
     Indication: PSORIATIC ARTHROPATHY
     Route: 058
     Dates: start: 201807, end: 201807
  3. TREMFYA [Suspect]
     Active Substance: GUSELKUMAB
     Route: 058
     Dates: end: 20180827

REACTIONS (1)
  - Liver disorder [Recovered/Resolved]

NARRATIVE: CASE EVENT DATE: 20180828
